FAERS Safety Report 18532796 (Version 1)
Quarter: 2020Q4

REPORT INFORMATION
  Report Type: Spontaneous
  Country: US (occurrence: US)
  Receive Date: 20201123
  Receipt Date: 20201123
  Transmission Date: 20210114
  Serious: No
  Sender: FDA-Public Use
  Company Number: US-SA-2020SA328903

PATIENT

DRUGS (11)
  1. XTAMPZA ER [Concomitant]
     Active Substance: OXYCODONE
  2. OMEPRAZOLE MAGNESIUM. [Concomitant]
     Active Substance: OMEPRAZOLE MAGNESIUM
  3. AUBAGIO [Suspect]
     Active Substance: TERIFLUNOMIDE
     Indication: MULTIPLE SCLEROSIS
  4. TOPIRAMATE. [Concomitant]
     Active Substance: TOPIRAMATE
  5. OXYCODONE [Concomitant]
     Active Substance: OXYCODONE
  6. GABAPENTIN. [Concomitant]
     Active Substance: GABAPENTIN
  7. METHOCARBAMOL. [Concomitant]
     Active Substance: METHOCARBAMOL
  8. CITALOPRAM [Concomitant]
     Active Substance: CITALOPRAM HYDROBROMIDE
  9. CLONAZEPAM. [Concomitant]
     Active Substance: CLONAZEPAM
  10. ATORVASTATIN CALCIUM. [Concomitant]
     Active Substance: ATORVASTATIN CALCIUM
  11. TOLTERODINE [Concomitant]
     Active Substance: TOLTERODINE

REACTIONS (1)
  - Drug ineffective [Unknown]
